FAERS Safety Report 9695311 (Version 2)
Quarter: 2013Q4

REPORT INFORMATION
  Report Type: Spontaneous
  Country: US (occurrence: US)
  Receive Date: 20131119
  Receipt Date: 20131119
  Transmission Date: 20140711
  Serious: Yes (Death, Other)
  Sender: FDA-Public Use
  Company Number: US-ASTELLAS-2013US010421

PATIENT
  Age: 45 Year
  Sex: Male

DRUGS (9)
  1. XTANDI [Suspect]
     Indication: PROSTATE CANCER METASTATIC
     Dosage: 160 MG, UID/QD
     Route: 048
     Dates: start: 20130628, end: 20131001
  2. LORAZEPAM [Concomitant]
     Indication: PRODUCT USED FOR UNKNOWN INDICATION
     Dosage: UNK
     Route: 065
  3. ZOFRAN                             /00955301/ [Concomitant]
     Indication: PRODUCT USED FOR UNKNOWN INDICATION
     Dosage: UNK
     Route: 065
  4. PERCOCET                           /00446701/ [Concomitant]
     Indication: PRODUCT USED FOR UNKNOWN INDICATION
     Dosage: UNK
     Route: 065
  5. PREDNISONE [Concomitant]
     Indication: PRODUCT USED FOR UNKNOWN INDICATION
     Dosage: UNK
     Route: 065
  6. MS CONTIN [Concomitant]
     Indication: PAIN
     Dosage: UNK
     Route: 065
  7. MS CONTIN [Concomitant]
     Dosage: 200 MG, BID
     Route: 065
     Dates: start: 20130718
  8. OXYCODONE [Concomitant]
     Indication: PAIN
     Dosage: UNK
     Route: 065
  9. OXYCODONE [Concomitant]
     Dosage: 60 MG, Q 3-4 HOURS
     Dates: start: 20130718

REACTIONS (11)
  - Death [Fatal]
  - Prostatic specific antigen increased [Unknown]
  - Anaemia [Unknown]
  - Hospice care [Unknown]
  - Dyspnoea [Recovered/Resolved]
  - Decreased appetite [Unknown]
  - Hypotension [Recovered/Resolved]
  - Heart rate increased [Recovered/Resolved]
  - Weight decreased [Recovered/Resolved]
  - Pain [Unknown]
  - Asthenia [Recovered/Resolved]
